FAERS Safety Report 23148850 (Version 1)
Quarter: 2023Q4

REPORT INFORMATION
  Report Type: Spontaneous
  Country: US (occurrence: US)
  Receive Date: 20231106
  Receipt Date: 20231106
  Transmission Date: 20240109
  Serious: Yes (Other)
  Sender: FDA-Public Use
  Company Number: US-GLAXOSMITHKLINE-US2023150230

PATIENT

DRUGS (1)
  1. FLOVENT HFA [Suspect]
     Active Substance: FLUTICASONE PROPIONATE
     Indication: Emphysema
     Dosage: 200 UG OR 200 MCG

REACTIONS (4)
  - Cataract [Unknown]
  - Osteogenesis imperfecta [Unknown]
  - Teeth brittle [Unknown]
  - Bone erosion [Unknown]
